FAERS Safety Report 15286954 (Version 1)
Quarter: 2018Q3

REPORT INFORMATION
  Report Type: Spontaneous
  Country: US (occurrence: US)
  Receive Date: 20180816
  Receipt Date: 20180816
  Transmission Date: 20181010
  Serious: No
  Sender: FDA-Public Use
  Company Number: US-ASTRAZENECA-2018SF03779

PATIENT
  Age: 52 Year
  Sex: Female

DRUGS (2)
  1. MOVANTIK [Suspect]
     Active Substance: NALOXEGOL OXALATE
     Indication: CONSTIPATION
     Dosage: UNKNOWN DOSE
     Route: 048
     Dates: start: 2016
  2. MORPHINE SULFATE. [Concomitant]
     Active Substance: MORPHINE SULFATE
     Dosage: ONE TABLET OF 30 MG AND ONE TABLET OF 60 MG TWICE A DAY
     Dates: start: 20180727

REACTIONS (1)
  - Constipation [Unknown]
